FAERS Safety Report 9538974 (Version 1)
Quarter: 2013Q2

REPORT INFORMATION
  Report Type: Spontaneous
  Country: US (occurrence: None)
  Receive Date: 20130517
  Receipt Date: 20130517
  Transmission Date: 20140414
  Serious: No
  Sender: FDA-Public Use
  Company Number: 1000042655

PATIENT
  Age: 39 Year
  Sex: Male

DRUGS (1)
  1. VIIBRYD [Suspect]
     Dosage: 40 MG ( 40 MG, 1 IN 1 D), ORAL
     Route: 048

REACTIONS (9)
  - Hyperhidrosis [None]
  - Agitation [None]
  - Eye swelling [None]
  - Herpes zoster [None]
  - Mania [None]
  - Pruritus [None]
  - Nausea [None]
  - Stress [None]
  - Anxiety [None]
